FAERS Safety Report 4350175-8 (Version None)
Quarter: 2004Q2

REPORT INFORMATION
  Report Type: 
  Country: None (occurrence: None)
  Receive Date: 20040426
  Receipt Date: 20040419
  Transmission Date: 20050107
  Serious: Yes (Death)
  Sender: FDA-Public Use
  Company Number: US-JNJFOC-20040404308

PATIENT
  Age: 76 Year
  Sex: Male

DRUGS (11)
  1. SPORANOX [Suspect]
     Indication: PNEUMONIA ASPERGILLUS
     Dosage: 100 MG, 2 IN 1 DAY, ORAL
     Route: 048
     Dates: start: 20040101, end: 20040415
  2. LEVAQUIN [Concomitant]
  3. ALBUTEROL [Concomitant]
  4. OXYGEN (OXYGEN) [Concomitant]
  5. SURFAK (DOCUSATE CALCIUM) [Concomitant]
  6. LEXAPRO ( ALL OTHER THERAPEUTIC PRODUCTS) [Concomitant]
  7. LEVOTHROID [Concomitant]
  8. K-DUR 10 [Concomitant]
  9. COMPAZINE [Concomitant]
  10. FLOMAX [Concomitant]
  11. COMBIVENT [Concomitant]

REACTIONS (1)
  - LEUKAEMIA [None]
